FAERS Safety Report 10265210 (Version 1)
Quarter: 2014Q2

REPORT INFORMATION
  Report Type: Spontaneous
  Country: IE (occurrence: IE)
  Receive Date: 20140627
  Receipt Date: 20140627
  Transmission Date: 20141212
  Serious: Yes (Death, Hospitalization)
  Sender: FDA-Public Use
  Company Number: IE-AMGEN-IRLSP2014047435

PATIENT
  Age: 85 Year
  Sex: Male

DRUGS (10)
  1. ARANESP [Suspect]
     Indication: RENAL FAILURE CHRONIC
     Dosage: UNK
     Route: 065
     Dates: start: 20120629
  2. KEPPRA [Concomitant]
  3. GALFER [Concomitant]
  4. PLAVIX [Concomitant]
  5. ANAFRANIL [Concomitant]
  6. PRAXILENE [Concomitant]
  7. LOSEC                              /00661201/ [Concomitant]
  8. CALCICHEW [Concomitant]
  9. LIPITOR [Concomitant]
  10. CALCIUM ACETATE [Concomitant]

REACTIONS (2)
  - Death [Fatal]
  - Investigation [Unknown]
